FAERS Safety Report 17616371 (Version 1)
Quarter: 2020Q2

REPORT INFORMATION
  Report Type: Report from Study
  Country: IT (occurrence: IT)
  Receive Date: 20200402
  Receipt Date: 20200402
  Transmission Date: 20200713
  Serious: Yes (Hospitalization)
  Sender: FDA-Public Use
  Company Number: IT-PFIZER INC-2020136622

PATIENT
  Age: 72 Year
  Sex: Female

DRUGS (2)
  1. KESTINE [Suspect]
     Active Substance: EBASTINE
     Indication: DRUG HYPERSENSITIVITY
     Dosage: 1 DF, UNK
     Dates: start: 20200217, end: 20200217
  2. MEDROL [Suspect]
     Active Substance: METHYLPREDNISOLONE
     Indication: DRUG HYPERSENSITIVITY
     Dosage: 1 DF, UNK
     Dates: start: 20200217, end: 20200217

REACTIONS (3)
  - Sensation of foreign body [Recovering/Resolving]
  - Hypersensitivity [Recovering/Resolving]
  - Skin lesion [Recovering/Resolving]

NARRATIVE: CASE EVENT DATE: 20200218
